FAERS Safety Report 13854619 (Version 3)
Quarter: 2017Q4

REPORT INFORMATION
  Report Type: Report from Study
  Country: US (occurrence: US)
  Receive Date: 20170809
  Receipt Date: 20171116
  Transmission Date: 20180320
  Serious: Yes (Hospitalization)
  Sender: FDA-Public Use
  Company Number: US-VIFOR (INTERNATIONAL) INC.-VIT-2017-08350

PATIENT
  Age: 81 Year
  Sex: Male
  Weight: 70.37 kg

DRUGS (3)
  1. HUMULIN NOS [Concomitant]
     Active Substance: INSULIN HUMAN
     Indication: DIABETES MELLITUS
  2. VELTASSA [Suspect]
     Active Substance: PATIROMER
     Indication: BLOOD POTASSIUM INCREASED
     Route: 048
     Dates: start: 20170630
  3. LYRICA [Suspect]
     Active Substance: PREGABALIN
     Indication: PAIN

REACTIONS (7)
  - Blood sodium increased [Recovered/Resolved]
  - Malaise [Unknown]
  - Pain [Unknown]
  - Benign neoplasm of eye [Unknown]
  - Hospitalisation [Unknown]
  - Blood potassium increased [Recovered/Resolved]
  - Hyperglycaemia [Unknown]

NARRATIVE: CASE EVENT DATE: 2017
